FAERS Safety Report 10518954 (Version 1)
Quarter: 2014Q4

REPORT INFORMATION
  Report Type: Spontaneous
  Country: US (occurrence: None)
  Receive Date: 20141014
  Receipt Date: 20141014
  Transmission Date: 20150528
  Serious: Yes (Hospitalization)
  Sender: FDA-Public Use
  Company Number: None

PATIENT
  Age: 72 Year
  Sex: Male
  Weight: 81.8 kg

DRUGS (1)
  1. IOPAMIDOL [Suspect]
     Active Substance: IOPAMIDOL
     Indication: CARDIAC FAILURE CONGESTIVE
     Dates: start: 20140707, end: 20140707

REACTIONS (3)
  - Acute kidney injury [None]
  - Cardiac failure congestive [None]
  - Fluid overload [None]

NARRATIVE: CASE EVENT DATE: 20140707
